FAERS Safety Report 13540189 (Version 2)
Quarter: 2017Q2

REPORT INFORMATION
  Report Type: Spontaneous
  Country: US (occurrence: US)
  Receive Date: 20170512
  Receipt Date: 20170601
  Transmission Date: 20170830
  Serious: Yes (Other)
  Sender: FDA-Public Use
  Company Number: US-009507513-1705USA005359

PATIENT
  Sex: Female

DRUGS (1)
  1. NEXPLANON [Suspect]
     Active Substance: ETONOGESTREL
     Indication: CONTRACEPTION
     Dosage: DOSE/FREQUENCY: ONE ROD EVERY THREE YEARS
     Route: 059

REACTIONS (4)
  - Device difficult to use [Recovered/Resolved]
  - Unintended pregnancy [Unknown]
  - Peripheral nerve injury [Unknown]
  - Pregnancy with implant contraceptive [Unknown]
